FAERS Safety Report 8093242-8 (Version None)
Quarter: 2012Q1

REPORT INFORMATION
  Report Type: 
  Country: None (occurrence: None)
  Receive Date: 20120128
  Receipt Date: 20111026
  Transmission Date: 20120608
  Serious: No
  Sender: FDA-Public Use
  Company Number: US-ABBOTT-11P-163-0725082-00

PATIENT
  Age: 55 Year
  Sex: Female

DRUGS (7)
  1. VOLTAREN [Concomitant]
     Indication: CARDIOVASCULAR EVENT PROPHYLAXIS
     Dosage: DAILY
  2. HUMIRA [Suspect]
     Indication: PSORIASIS
     Dates: start: 20100501, end: 20110501
  3. PLAVIX [Concomitant]
     Indication: CARDIOVASCULAR EVENT PROPHYLAXIS
     Dosage: DAILY
  4. VYTORIN [Concomitant]
     Indication: PRODUCT USED FOR UNKNOWN INDICATION
  5. ALTACE [Concomitant]
     Indication: CARDIOVASCULAR EVENT PROPHYLAXIS
     Dosage: DAILY
  6. ASPIRIN [Concomitant]
     Indication: CARDIOVASCULAR EVENT PROPHYLAXIS
     Dosage: DAILY
  7. LEXAPRO [Concomitant]
     Indication: ANXIETY
     Dosage: 10MG DAILY

REACTIONS (5)
  - STREPTOCOCCAL INFECTION [None]
  - FUNGAL INFECTION [None]
  - HYPERSENSITIVITY [None]
  - PSORIASIS [None]
  - RASH PRURITIC [None]
